FAERS Safety Report 24054799 (Version 1)
Quarter: 2024Q3

REPORT INFORMATION
  Report Type: Spontaneous
  Country: US (occurrence: None)
  Receive Date: 20240703
  Receipt Date: 20240703
  Transmission Date: 20241016
  Serious: Yes (Death)
  Sender: Public
  Company Number: None

PATIENT
  Sex: Female

DRUGS (10)
  1. TERIFLUNOMIDE [Suspect]
     Active Substance: TERIFLUNOMIDE
     Indication: Multiple sclerosis
     Dosage: FREQ: TAKE ONE TABLET BY MOUTH EVERY NIGHT AT BEDTIME?
     Route: 048
     Dates: start: 20230413
  2. AMANTADINE [Concomitant]
     Active Substance: AMANTADINE
  3. ARMODAFINIL [Concomitant]
     Active Substance: ARMODAFINIL
  4. ATOMOXETINE [Concomitant]
     Active Substance: ATOMOXETINE HYDROCHLORIDE
  5. ATORVASTATIN [Concomitant]
     Active Substance: ATORVASTATIN
  6. AUBAGIO [Concomitant]
     Active Substance: TERIFLUNOMIDE
  7. CITALOPRAM [Concomitant]
     Active Substance: CITALOPRAM\CITALOPRAM HYDROBROMIDE
  8. DETROL LA [Concomitant]
     Active Substance: TOLTERODINE TARTRATE
  9. LEVOTHYROXINE [Concomitant]
     Active Substance: LEVOTHYROXINE\LEVOTHYROXINE SODIUM
  10. LORAZEPAM [Concomitant]
     Active Substance: LORAZEPAM

REACTIONS (1)
  - Death [None]
